FAERS Safety Report 7572019-3 (Version None)
Quarter: 2011Q2

REPORT INFORMATION
  Report Type: 
  Country: None (occurrence: None)
  Receive Date: 20110624
  Receipt Date: 20110525
  Transmission Date: 20111010
  Serious: Yes (Hospitalization)
  Sender: FDA-Public Use
  Company Number: IL-UCBSA-023630

PATIENT
  Sex: Male
  Weight: 76 kg

DRUGS (3)
  1. CERTOLIZUMAB PEGOL [Suspect]
     Route: 058
     Dates: end: 20100801
  2. CERTOLIZUMAB PEGOL [Suspect]
     Indication: RHEUMATOID ARTHRITIS
     Dosage: CDP870-027- TOTAL NUBER OF DOSE- 26
     Route: 058
     Dates: start: 20050815, end: 20060731
  3. CERTOLIZUMAB PEGOL [Suspect]
     Route: 058
     Dates: start: 20060814, end: 20071230

REACTIONS (1)
  - INFECTION [None]
